FAERS Safety Report 12001202 (Version 1)
Quarter: 2016Q1

REPORT INFORMATION
  Report Type: Report from Study
  Country: SE (occurrence: SE)
  Receive Date: 20160204
  Receipt Date: 20160204
  Transmission Date: 20160526
  Serious: Yes (Other)
  Sender: FDA-Public Use
  Company Number: SE-MYLANLABS-2016M1004500

PATIENT

DRUGS (1)
  1. AZITHROMYCIN ANHYDROUS. [Suspect]
     Active Substance: AZITHROMYCIN ANHYDROUS
     Indication: URETHRITIS MYCOPLASMAL
     Dosage: 1 G SINGLE DOSE
     Route: 065

REACTIONS (1)
  - Pathogen resistance [Unknown]
